FAERS Safety Report 26074886 (Version 1)
Quarter: 2025Q4

REPORT INFORMATION
  Report Type: Spontaneous
  Country: EU (occurrence: EU)
  Receive Date: 20251121
  Receipt Date: 20251121
  Transmission Date: 20260118
  Serious: Yes (Death, Hospitalization)
  Sender: TEVA
  Company Number: EU-DCGMA-25206071

PATIENT
  Age: 87 Year
  Sex: Female
  Weight: 60 kg

DRUGS (2)
  1. DOXYCYCLINE [Suspect]
     Active Substance: DOXYCYCLINE
     Indication: Staphylococcal infection
     Dosage: 100MG 1-0-1
     Route: 065
     Dates: start: 20250827, end: 20251007
  2. RIFAMPIN [Suspect]
     Active Substance: RIFAMPIN
     Indication: Staphylococcal infection
     Dosage: 450MG 1-0-1
     Route: 065
     Dates: start: 20250827, end: 20251001

REACTIONS (2)
  - Acute hepatic failure [Fatal]
  - Drug-induced liver injury [Fatal]

NARRATIVE: CASE EVENT DATE: 20251001
